FAERS Safety Report 25212027 (Version 1)
Quarter: 2025Q2

REPORT INFORMATION
  Report Type: Report from Study
  Country: US (occurrence: US)
  Receive Date: 20250418
  Receipt Date: 20250418
  Transmission Date: 20250717
  Serious: Yes (Other)
  Sender: UCB
  Company Number: US-UCBSA-2025022757

PATIENT
  Age: 62 Year
  Sex: Female

DRUGS (1)
  1. BIMEKIZUMAB [Suspect]
     Active Substance: BIMEKIZUMAB
     Indication: Psoriasis
     Dosage: 320 MILLIGRAMS, EV 8 WEEKS
     Route: 058

REACTIONS (3)
  - Myocardial infarction [Unknown]
  - Coronary arterial stent insertion [Unknown]
  - Inappropriate schedule of product administration [Unknown]

NARRATIVE: CASE EVENT DATE: 20250409
